FAERS Safety Report 21404998 (Version 8)
Quarter: 2024Q3

REPORT INFORMATION
  Report Type: Report from Study
  Country: US (occurrence: US)
  Receive Date: 20221003
  Receipt Date: 20240920
  Transmission Date: 20241017
  Serious: Yes (Hospitalization)
  Sender: TAKEDA
  Company Number: US-TAKEDA-2022TUS069901

PATIENT
  Sex: Female
  Weight: 78 kg

DRUGS (62)
  1. TEDUGLUTIDE [Suspect]
     Active Substance: TEDUGLUTIDE
     Indication: Short-bowel syndrome
     Dosage: 0.31 MILLILITER, QD
     Route: 058
     Dates: start: 202209
  2. TEDUGLUTIDE [Suspect]
     Active Substance: TEDUGLUTIDE
     Indication: Short-bowel syndrome
     Dosage: 0.31 MILLILITER, QD
     Route: 058
     Dates: start: 202209
  3. TEDUGLUTIDE [Suspect]
     Active Substance: TEDUGLUTIDE
     Indication: Short-bowel syndrome
     Dosage: 0.31 MILLILITER, QD
     Route: 058
     Dates: start: 202209
  4. TEDUGLUTIDE [Suspect]
     Active Substance: TEDUGLUTIDE
     Indication: Short-bowel syndrome
     Dosage: 0.31 MILLILITER, QD
     Route: 058
     Dates: start: 202209
  5. TEDUGLUTIDE [Suspect]
     Active Substance: TEDUGLUTIDE
     Indication: Gastrointestinal disorder
     Dosage: 3.5 MILLIGRAM, QD
     Route: 058
     Dates: start: 20220927
  6. TEDUGLUTIDE [Suspect]
     Active Substance: TEDUGLUTIDE
     Indication: Gastrointestinal disorder
     Dosage: 3.5 MILLIGRAM, QD
     Route: 058
     Dates: start: 20220927
  7. TEDUGLUTIDE [Suspect]
     Active Substance: TEDUGLUTIDE
     Indication: Gastrointestinal disorder
     Dosage: 3.5 MILLIGRAM, QD
     Route: 058
     Dates: start: 20220927
  8. TEDUGLUTIDE [Suspect]
     Active Substance: TEDUGLUTIDE
     Indication: Gastrointestinal disorder
     Dosage: 3.5 MILLIGRAM, QD
     Route: 058
     Dates: start: 20220927
  9. TEDUGLUTIDE [Suspect]
     Active Substance: TEDUGLUTIDE
     Dosage: 3.1 MILLIGRAM, QD
     Route: 058
     Dates: end: 20221005
  10. TEDUGLUTIDE [Suspect]
     Active Substance: TEDUGLUTIDE
     Dosage: 3.1 MILLIGRAM, QD
     Route: 058
     Dates: end: 20221005
  11. TEDUGLUTIDE [Suspect]
     Active Substance: TEDUGLUTIDE
     Dosage: 3.1 MILLIGRAM, QD
     Route: 058
     Dates: end: 20221005
  12. TEDUGLUTIDE [Suspect]
     Active Substance: TEDUGLUTIDE
     Dosage: 3.1 MILLIGRAM, QD
     Route: 058
     Dates: end: 20221005
  13. TEDUGLUTIDE [Suspect]
     Active Substance: TEDUGLUTIDE
     Dosage: 1.6 MILLIGRAM, QD
     Route: 058
     Dates: start: 20221006, end: 20221010
  14. TEDUGLUTIDE [Suspect]
     Active Substance: TEDUGLUTIDE
     Dosage: 1.6 MILLIGRAM, QD
     Route: 058
     Dates: start: 20221006, end: 20221010
  15. TEDUGLUTIDE [Suspect]
     Active Substance: TEDUGLUTIDE
     Dosage: 1.6 MILLIGRAM, QD
     Route: 058
     Dates: start: 20221006, end: 20221010
  16. TEDUGLUTIDE [Suspect]
     Active Substance: TEDUGLUTIDE
     Dosage: 1.6 MILLIGRAM, QD
     Route: 058
     Dates: start: 20221006, end: 20221010
  17. TEDUGLUTIDE [Suspect]
     Active Substance: TEDUGLUTIDE
     Dosage: 2.4 MILLIGRAM, QD
     Route: 058
     Dates: start: 20221011, end: 20221012
  18. TEDUGLUTIDE [Suspect]
     Active Substance: TEDUGLUTIDE
     Dosage: 2.4 MILLIGRAM, QD
     Route: 058
     Dates: start: 20221011, end: 20221012
  19. TEDUGLUTIDE [Suspect]
     Active Substance: TEDUGLUTIDE
     Dosage: 2.4 MILLIGRAM, QD
     Route: 058
     Dates: start: 20221011, end: 20221012
  20. TEDUGLUTIDE [Suspect]
     Active Substance: TEDUGLUTIDE
     Dosage: 2.4 MILLIGRAM, QD
     Route: 058
     Dates: start: 20221011, end: 20221012
  21. TEDUGLUTIDE [Suspect]
     Active Substance: TEDUGLUTIDE
     Dosage: 3.2 MILLIGRAM, QD
     Route: 058
     Dates: start: 20221013, end: 20221015
  22. TEDUGLUTIDE [Suspect]
     Active Substance: TEDUGLUTIDE
     Dosage: 3.2 MILLIGRAM, QD
     Route: 058
     Dates: start: 20221013, end: 20221015
  23. TEDUGLUTIDE [Suspect]
     Active Substance: TEDUGLUTIDE
     Dosage: 3.2 MILLIGRAM, QD
     Route: 058
     Dates: start: 20221013, end: 20221015
  24. TEDUGLUTIDE [Suspect]
     Active Substance: TEDUGLUTIDE
     Dosage: 3.2 MILLIGRAM, QD
     Route: 058
     Dates: start: 20221013, end: 20221015
  25. TEDUGLUTIDE [Suspect]
     Active Substance: TEDUGLUTIDE
     Dosage: 1.6 MILLIGRAM, QD
     Route: 058
     Dates: start: 20221016, end: 20221017
  26. TEDUGLUTIDE [Suspect]
     Active Substance: TEDUGLUTIDE
     Dosage: 1.6 MILLIGRAM, QD
     Route: 058
     Dates: start: 20221016, end: 20221017
  27. TEDUGLUTIDE [Suspect]
     Active Substance: TEDUGLUTIDE
     Dosage: 1.6 MILLIGRAM, QD
     Route: 058
     Dates: start: 20221016, end: 20221017
  28. TEDUGLUTIDE [Suspect]
     Active Substance: TEDUGLUTIDE
     Dosage: 1.6 MILLIGRAM, QD
     Route: 058
     Dates: start: 20221016, end: 20221017
  29. TEDUGLUTIDE [Suspect]
     Active Substance: TEDUGLUTIDE
     Dosage: 1.6 MILLIGRAM, QD
     Route: 058
     Dates: start: 20221026, end: 20221101
  30. TEDUGLUTIDE [Suspect]
     Active Substance: TEDUGLUTIDE
     Dosage: 1.6 MILLIGRAM, QD
     Route: 058
     Dates: start: 20221026, end: 20221101
  31. TEDUGLUTIDE [Suspect]
     Active Substance: TEDUGLUTIDE
     Dosage: 1.6 MILLIGRAM, QD
     Route: 058
     Dates: start: 20221026, end: 20221101
  32. TEDUGLUTIDE [Suspect]
     Active Substance: TEDUGLUTIDE
     Dosage: 1.6 MILLIGRAM, QD
     Route: 058
     Dates: start: 20221026, end: 20221101
  33. TEDUGLUTIDE [Suspect]
     Active Substance: TEDUGLUTIDE
     Dosage: 1.6 MILLIGRAM, QD
     Route: 058
     Dates: start: 20221103, end: 20221116
  34. TEDUGLUTIDE [Suspect]
     Active Substance: TEDUGLUTIDE
     Dosage: 1.6 MILLIGRAM, QD
     Route: 058
     Dates: start: 20221103, end: 20221116
  35. TEDUGLUTIDE [Suspect]
     Active Substance: TEDUGLUTIDE
     Dosage: 1.6 MILLIGRAM, QD
     Route: 058
     Dates: start: 20221103, end: 20221116
  36. TEDUGLUTIDE [Suspect]
     Active Substance: TEDUGLUTIDE
     Dosage: 1.6 MILLIGRAM, QD
     Route: 058
     Dates: start: 20221103, end: 20221116
  37. TEDUGLUTIDE [Suspect]
     Active Substance: TEDUGLUTIDE
     Dosage: 1.8 MILLIGRAM, QD
     Route: 058
     Dates: start: 20221206, end: 20221223
  38. TEDUGLUTIDE [Suspect]
     Active Substance: TEDUGLUTIDE
     Dosage: 1.8 MILLIGRAM, QD
     Route: 058
     Dates: start: 20221206, end: 20221223
  39. TEDUGLUTIDE [Suspect]
     Active Substance: TEDUGLUTIDE
     Dosage: 1.8 MILLIGRAM, QD
     Route: 058
     Dates: start: 20221206, end: 20221223
  40. TEDUGLUTIDE [Suspect]
     Active Substance: TEDUGLUTIDE
     Dosage: 1.8 MILLIGRAM, QD
     Route: 058
     Dates: start: 20221206, end: 20221223
  41. TEDUGLUTIDE [Suspect]
     Active Substance: TEDUGLUTIDE
     Dosage: 1.7 MILLIGRAM, QD
     Route: 058
     Dates: start: 20221224
  42. TEDUGLUTIDE [Suspect]
     Active Substance: TEDUGLUTIDE
     Dosage: 1.7 MILLIGRAM, QD
     Route: 058
     Dates: start: 20221224
  43. TEDUGLUTIDE [Suspect]
     Active Substance: TEDUGLUTIDE
     Dosage: 1.7 MILLIGRAM, QD
     Route: 058
     Dates: start: 20221224
  44. TEDUGLUTIDE [Suspect]
     Active Substance: TEDUGLUTIDE
     Dosage: 1.7 MILLIGRAM, QD
     Route: 058
     Dates: start: 20221224
  45. TEDUGLUTIDE [Suspect]
     Active Substance: TEDUGLUTIDE
     Dosage: 3.1 MILLIGRAM, QD
     Route: 058
  46. TEDUGLUTIDE [Suspect]
     Active Substance: TEDUGLUTIDE
     Dosage: 3.1 MILLIGRAM, QD
     Route: 058
  47. TEDUGLUTIDE [Suspect]
     Active Substance: TEDUGLUTIDE
     Dosage: 3.1 MILLIGRAM, QD
     Route: 058
  48. TEDUGLUTIDE [Suspect]
     Active Substance: TEDUGLUTIDE
     Dosage: 3.1 MILLIGRAM, QD
     Route: 058
  49. TEDUGLUTIDE [Suspect]
     Active Substance: TEDUGLUTIDE
     Dosage: 3.1 MILLIGRAM, QD
     Route: 058
  50. TEDUGLUTIDE [Suspect]
     Active Substance: TEDUGLUTIDE
     Dosage: 3.1 MILLIGRAM, QD
     Route: 058
  51. TEDUGLUTIDE [Suspect]
     Active Substance: TEDUGLUTIDE
     Dosage: 3.1 MILLIGRAM, QD
     Route: 058
  52. TEDUGLUTIDE [Suspect]
     Active Substance: TEDUGLUTIDE
     Dosage: 3.1 MILLIGRAM, QD
     Route: 058
  53. LASIX [Concomitant]
     Active Substance: FUROSEMIDE
     Dosage: UNK
     Route: 065
  54. OXYCODONE [Concomitant]
     Active Substance: OXYCODONE
     Dosage: UNK
  55. MELATONIN [Concomitant]
     Active Substance: MELATONIN
  56. CYCLOBENZAPRINE HYDROCHLORIDE [Concomitant]
     Active Substance: CYCLOBENZAPRINE HYDROCHLORIDE
     Dosage: UNK
  57. SPIRIVA RESPIMAT [Concomitant]
     Active Substance: TIOTROPIUM BROMIDE
  58. GABAPENTIN [Concomitant]
     Active Substance: GABAPENTIN
  59. ALBUTEROL SULFATE [Concomitant]
     Active Substance: ALBUTEROL SULFATE
     Dosage: UNK
  60. ACETAMINOPHEN [Concomitant]
     Active Substance: ACETAMINOPHEN
  61. ONDANSETRON HYDROCHLORIDE [Concomitant]
     Active Substance: ONDANSETRON HYDROCHLORIDE
  62. VITAMIN D2 [Concomitant]
     Active Substance: ERGOCALCIFEROL

REACTIONS (7)
  - Weight increased [Not Recovered/Not Resolved]
  - Post procedural complication [Unknown]
  - Nausea [Not Recovered/Not Resolved]
  - Vomiting [Not Recovered/Not Resolved]
  - Hyperphagia [Unknown]
  - Injection site hypertrophy [Unknown]
  - Fluid retention [Unknown]
